FAERS Safety Report 21645220 (Version 1)
Quarter: 2022Q4

REPORT INFORMATION
  Report Type: Spontaneous
  Country: US (occurrence: US)
  Receive Date: 20221126
  Receipt Date: 20221126
  Transmission Date: 20230113
  Serious: No
  Sender: FDA-Public Use
  Company Number: US-BANNER LIFE SCIENCES, LLC-2022BAN000211

PATIENT
  Age: 36 Year
  Sex: Female

DRUGS (2)
  1. BAFIERTAM [Suspect]
     Active Substance: MONOMETHYL FUMARATE
     Indication: Multiple sclerosis
     Dosage: 95 MILLIGRAM, 1 CAPSULE BID 7 DAYS
     Route: 048
     Dates: start: 20220818, end: 202208
  2. BAFIERTAM [Suspect]
     Active Substance: MONOMETHYL FUMARATE
     Dosage: 190 MILLIGRAM, 2 CAPSULES BID
     Route: 048
     Dates: start: 202208

REACTIONS (5)
  - Flushing [Unknown]
  - Feeling hot [Unknown]
  - Pruritus [Unknown]
  - Rash macular [Unknown]
  - Erythema [Unknown]

NARRATIVE: CASE EVENT DATE: 20220823
